FAERS Safety Report 22001004 (Version 1)
Quarter: 2023Q1

REPORT INFORMATION
  Report Type: Spontaneous
  Country: US (occurrence: US)
  Receive Date: 20230216
  Receipt Date: 20230216
  Transmission Date: 20230417
  Serious: Yes (Death, Other)
  Sender: FDA-Public Use
  Company Number: US-BAYER-2023P009229

PATIENT
  Age: 58 Year
  Sex: Male

DRUGS (2)
  1. ASPIRIN [Suspect]
     Active Substance: ASPIRIN
  2. CLOPIDOGREL [Suspect]
     Active Substance: CLOPIDOGREL BISULFATE

REACTIONS (7)
  - Cerebellar microhaemorrhage [Fatal]
  - Hemiplegia [Fatal]
  - Urinary incontinence [Fatal]
  - Disorientation [Fatal]
  - Septic shock [Fatal]
  - Pneumonia aspiration [Fatal]
  - Labelled drug-drug interaction medication error [None]
